FAERS Safety Report 7810726-5 (Version None)
Quarter: 2011Q4

REPORT INFORMATION
  Report Type: 
  Country: None (occurrence: None)
  Receive Date: 20111006
  Receipt Date: 20110920
  Transmission Date: 20120403
  Serious: Yes (Hospitalization, Other)
  Sender: FDA-Public Use
  Company Number: CIP11001711

PATIENT
  Age: 76 Year
  Sex: Female

DRUGS (23)
  1. CALCIUM PLUS D3 (CALCIUM, COLECALCIFEROL) [Concomitant]
  2. CYMBALTA [Concomitant]
  3. MULTIVITAMIN /01229101/ (VITAMINS NOS) [Concomitant]
  4. IRON (IRON) [Concomitant]
  5. NEXIUM	/01479302/ (ESOMEPRAZOLE MAGNESIUM) [Concomitant]
  6. OMEPRAZOLE [Concomitant]
  7. SANCTURA [Concomitant]
  8. FERROUS SULFATE TAB [Concomitant]
  9. VITAMIN C /00008001/ (ASCORBIC ACID) [Concomitant]
  10. LEVAQUIN [Concomitant]
  11. ASPIRIN [Concomitant]
  12. COQ 10 (UBIDECARENONE) [Concomitant]
  13. FISH OIL (FISH OIL) [Concomitant]
  14. ZETIA [Concomitant]
  15. NIASPAN [Concomitant]
  16. GLUCOSAMINE (GLUCOSAMINE) [Concomitant]
  17. TRAMADOL HCL [Concomitant]
  18. GABAPENTIN [Concomitant]
  19. ACTONEL [Suspect]
     Indication: OSTEOPOROSIS
     Dosage: 35 MG ONCE WEEKLY, ORAL
     Route: 048
     Dates: start: 20080506, end: 20090601
  20. ACTONEL [Suspect]
     Indication: OSTEOPOROSIS
     Dosage: 35 MG ONCE WEEKLY, ORAL
     Route: 048
     Dates: start: 20090601, end: 20100331
  21. FOSAMAX [Suspect]
     Indication: OSTEOPOROSIS
     Dosage: 70 MG ONCE WEEKLY, ORAL
     Route: 048
     Dates: start: 20051021, end: 20080301
  22. BYSTOLIC [Concomitant]
  23. CELEBREX [Concomitant]

REACTIONS (12)
  - FALL [None]
  - POSTOPERATIVE WOUND COMPLICATION [None]
  - GASTRIC DISORDER [None]
  - ARTHRALGIA [None]
  - PAIN IN EXTREMITY [None]
  - ANAEMIA POSTOPERATIVE [None]
  - FEMUR FRACTURE [None]
  - ABASIA [None]
  - CALLUS FORMATION DELAYED [None]
  - STRESS FRACTURE [None]
  - PROCEDURAL HYPOTENSION [None]
  - PROCEDURAL PAIN [None]
